FAERS Safety Report 4654312-7 (Version None)
Quarter: 2005Q2

REPORT INFORMATION
  Report Type: 
  Country: None (occurrence: None)
  Receive Date: 20050404
  Receipt Date: 20041028
  Transmission Date: 20051028
  Serious: No
  Sender: FDA-Public Use
  Company Number: USA041082707

PATIENT
  Sex: Male

DRUGS (1)
  1. CYMBALTA (DULOEXTINE HYDROCHLORIDE) [Suspect]
     Indication: DEPRESSION
     Dosage: 60 MG/1 DAY

REACTIONS (2)
  - EMOTIONAL DISORDER [None]
  - FEELING ABNORMAL [None]
